FAERS Safety Report 6795126-1 (Version None)
Quarter: 2010Q2

REPORT INFORMATION
  Report Type: 
  Country: None (occurrence: None)
  Receive Date: 20100625
  Receipt Date: 20100625
  Transmission Date: 20101027
  Serious: Yes (Hospitalization, Other)
  Sender: FDA-Public Use
  Company Number: PHHO2009FR01183

PATIENT
  Sex: Female
  Weight: 64 kg

DRUGS (13)
  1. AFINITOR [Suspect]
     Indication: PANCREATIC NEUROENDOCRINE TUMOUR
     Dosage: 10 MG DAILY
     Route: 048
     Dates: start: 20080311, end: 20090115
  2. AFINITOR [Suspect]
     Dosage: 10 MG DAILY
     Route: 048
     Dates: start: 20090203, end: 20090212
  3. NOVOMIX [Concomitant]
  4. LEVOTHYROXINE SODIUM [Concomitant]
  5. TEVETEN [Concomitant]
  6. LASIX [Concomitant]
  7. DIFFU K [Concomitant]
  8. ALDACTONE [Concomitant]
  9. TAVANIC [Concomitant]
  10. ATARAX [Concomitant]
  11. ZOLPIDEM [Concomitant]
  12. RED BLOOD CELLS [Concomitant]
  13. PLATELETS [Concomitant]

REACTIONS (8)
  - ANAEMIA [None]
  - EJECTION FRACTION DECREASED [None]
  - HEART VALVE STENOSIS [None]
  - PLEURAL EFFUSION [None]
  - PULMONARY HYPERTENSION [None]
  - RIGHT VENTRICULAR DYSFUNCTION [None]
  - RIGHT VENTRICULAR FAILURE [None]
  - TRICUSPID VALVE INCOMPETENCE [None]
